FAERS Safety Report 4352028-8 (Version None)
Quarter: 2004Q2

REPORT INFORMATION
  Report Type: 
  Country: None (occurrence: None)
  Receive Date: 20040503
  Receipt Date: 20040326
  Transmission Date: 20050107
  Serious: Yes (Life-Threatening)
  Sender: FDA-Public Use
  Company Number: US-MERCK-0403USA02420

PATIENT
  Sex: Male
  Weight: 68 kg

DRUGS (7)
  1. AMIODARONE [Concomitant]
     Indication: VENTRICULAR TACHYCARDIA
     Route: 048
     Dates: start: 20020301
  2. ATENOLOL [Concomitant]
     Indication: CARDIAC FAILURE CONGESTIVE
     Route: 048
  3. SYNTHROID [Concomitant]
     Indication: HYPOTHYROIDISM
     Route: 048
     Dates: start: 20040201
  4. COZAAR [Concomitant]
     Indication: CARDIAC FAILURE CONGESTIVE
     Route: 048
     Dates: start: 20000301
  5. ZOCOR [Suspect]
     Indication: LIPIDS INCREASED
     Route: 048
     Dates: start: 20030101, end: 20040218
  6. ZOCOR [Suspect]
     Route: 048
     Dates: start: 19970101
  7. ZOCOR [Suspect]
     Route: 048
     Dates: end: 20030101

REACTIONS (3)
  - DRUG HYPERSENSITIVITY [None]
  - HEPATITIS [None]
  - MYOSITIS [None]
